FAERS Safety Report 16149236 (Version 1)
Quarter: 2019Q2

REPORT INFORMATION
  Report Type: Spontaneous
  Country: US (occurrence: US)
  Receive Date: 20190402
  Receipt Date: 20190402
  Transmission Date: 20190711
  Serious: Yes (Other)
  Sender: FDA-Public Use
  Company Number: US-VIFOR (INTERNATIONAL) INC.-VIT-2019-02887

PATIENT
  Sex: Male

DRUGS (15)
  1. VELTASSA [Suspect]
     Active Substance: PATIROMER
     Indication: HYPERKALAEMIA
     Route: 048
     Dates: start: 20181204
  2. VELTASSA [Suspect]
     Active Substance: PATIROMER
     Dates: start: 2019
  3. COREG [Concomitant]
     Active Substance: CARVEDILOL
  4. PRIMIDONE. [Concomitant]
     Active Substance: PRIMIDONE
  5. BUMETANIDE. [Concomitant]
     Active Substance: BUMETANIDE
  6. COUMADIN [Concomitant]
     Active Substance: WARFARIN SODIUM
  7. RENVELA [Concomitant]
     Active Substance: SEVELAMER CARBONATE
  8. DIGOXIN. [Concomitant]
     Active Substance: DIGOXIN
  9. SERTRALINE HCL [Concomitant]
     Active Substance: SERTRALINE HYDROCHLORIDE
  10. OMEPRAZOLE. [Concomitant]
     Active Substance: OMEPRAZOLE
  11. LIPITOR [Concomitant]
     Active Substance: ATORVASTATIN CALCIUM
  12. NITROGLYCERIN. [Concomitant]
     Active Substance: NITROGLYCERIN
  13. SENSIPAR [Concomitant]
     Active Substance: CINACALCET HYDROCHLORIDE
  14. RENAL [Concomitant]
  15. SODIUM BICARBONATE. [Concomitant]
     Active Substance: SODIUM BICARBONATE

REACTIONS (3)
  - Malaise [Unknown]
  - Dialysis [Unknown]
  - Refusal of treatment by patient [Unknown]
